FAERS Safety Report 9844922 (Version 1)
Quarter: 2014Q1

REPORT INFORMATION
  Report Type: Spontaneous
  Country: IN (occurrence: None)
  Receive Date: 20140122
  Receipt Date: 20140122
  Transmission Date: 20141002
  Serious: Yes (Death, Hospitalization)
  Sender: FDA-Public Use
  Company Number: 2014HINLIT0005

PATIENT
  Age: 46 Year
  Sex: Male

DRUGS (7)
  1. NEVIRAPINE [Suspect]
     Indication: HIV INFECTION
  2. ZIDOVUDINE (ZIDOVUDINE) [Suspect]
     Indication: HIV INFECTION
  3. LAMIVUDINE [Suspect]
     Indication: HIV INFECTION
  4. CO-TRIMOXAZOLE [Suspect]
     Indication: PRODUCT USED FOR UNKNOWN INDICATION
  5. STAVUDINE [Suspect]
     Indication: HIV INFECTION
  6. TENOFOVIR (TENOFOVIR) [Concomitant]
  7. EFAVIRENZ (EFAVIRENZ) [Concomitant]

REACTIONS (6)
  - Stevens-Johnson syndrome [None]
  - Anaemia [None]
  - Vomiting [None]
  - Hepatotoxicity [None]
  - White blood cell count decreased [None]
  - Blood pressure systolic increased [None]
